FAERS Safety Report 5691969-6 (Version None)
Quarter: 2008Q2

REPORT INFORMATION
  Report Type: 
  Country: None (occurrence: None)
  Receive Date: 20080402
  Receipt Date: 20080326
  Transmission Date: 20081010
  Serious: Yes (Hospitalization)
  Sender: FDA-Public Use
  Company Number: US-JNJFOC-20080306597

PATIENT
  Sex: Female
  Weight: 87.09 kg

DRUGS (5)
  1. LEVAQUIN [Suspect]
     Indication: DIVERTICULITIS
     Route: 048
  2. LEVAQUIN [Suspect]
     Indication: PNEUMONIA
     Route: 048
  3. GLYBERIDE [Concomitant]
     Indication: DIABETES MELLITUS
  4. DIOVAN [Concomitant]
     Indication: HYPERTENSION
     Route: 048
  5. MOBIC [Concomitant]
     Indication: PAIN
     Route: 048

REACTIONS (2)
  - MUSCULAR WEAKNESS [None]
  - PAIN [None]
